FAERS Safety Report 18182401 (Version 2)
Quarter: 2020Q3

REPORT INFORMATION
  Report Type: Report from Study
  Country: US (occurrence: US)
  Receive Date: 20200821
  Receipt Date: 20200915
  Transmission Date: 20201103
  Serious: Yes (Hospitalization, Other)
  Sender: FDA-Public Use
  Company Number: US-AMGEN-USASP2020133385

PATIENT
  Age: 63 Year
  Sex: Male

DRUGS (3)
  1. CRESTOR [Concomitant]
     Active Substance: ROSUVASTATIN CALCIUM
  2. REPATHA [Suspect]
     Active Substance: EVOLOCUMAB
     Indication: HYPERCHOLESTEROLAEMIA
  3. REPATHA [Suspect]
     Active Substance: EVOLOCUMAB
     Indication: BLOOD CHOLESTEROL ABNORMAL
     Dosage: 140 MILLIGRAM
     Route: 065
     Dates: start: 202006

REACTIONS (9)
  - Paralysis [Recovered/Resolved]
  - High density lipoprotein decreased [Unknown]
  - Weight decreased [Unknown]
  - Wrong technique in product usage process [Unknown]
  - Speech disorder [Not Recovered/Not Resolved]
  - Coronavirus infection [Unknown]
  - Blood triglycerides decreased [Unknown]
  - Coma [Unknown]
  - Non-high-density lipoprotein cholesterol decreased [Unknown]

NARRATIVE: CASE EVENT DATE: 2020
